FAERS Safety Report 6714285-X (Version None)
Quarter: 2010Q2

REPORT INFORMATION
  Report Type: 
  Country: None (occurrence: None)
  Receive Date: 20100506
  Receipt Date: 20100217
  Transmission Date: 20101027
  Serious: No
  Sender: FDA-Public Use
  Company Number: US-BAUSCH-2010BL000924

PATIENT
  Age: 56 Year
  Sex: Female

DRUGS (2)
  1. LOTEMAX [Suspect]
     Indication: EYE INFLAMMATION
     Route: 047
     Dates: start: 20100207, end: 20100208
  2. RESTASIS [Concomitant]

REACTIONS (3)
  - CONDITION AGGRAVATED [None]
  - LACRIMATION INCREASED [None]
  - OCULAR HYPERAEMIA [None]
